FAERS Safety Report 4989582-9 (Version None)
Quarter: 2006Q2

REPORT INFORMATION
  Report Type: 
  Country: None (occurrence: None)
  Receive Date: 20060502
  Receipt Date: 20051128
  Transmission Date: 20061013
  Serious: Yes (Hospitalization)
  Sender: FDA-Public Use
  Company Number: US-MERCK-0511USA04503

PATIENT
  Age: 64 Year
  Sex: Male
  Weight: 127 kg

DRUGS (4)
  1. VIOXX [Suspect]
     Indication: SPINAL COLUMN STENOSIS
     Route: 048
     Dates: start: 20010802, end: 20040517
  2. ASPIRIN [Concomitant]
     Route: 065
  3. LIPITOR [Concomitant]
     Route: 065
  4. METOPROLOL [Concomitant]
     Route: 065

REACTIONS (11)
  - ANGINA UNSTABLE [None]
  - ARTERIAL OCCLUSIVE DISEASE [None]
  - CARDIAC DISORDER [None]
  - CARDIOMEGALY [None]
  - CAROTID ARTERY STENOSIS [None]
  - CHEST PAIN [None]
  - CORONARY ARTERY DISEASE [None]
  - COUGH [None]
  - EYE HAEMORRHAGE [None]
  - HYPERTENSION [None]
  - VISION BLURRED [None]
